FAERS Safety Report 4546663-1 (Version None)
Quarter: 2005Q1

REPORT INFORMATION
  Report Type: 
  Country: None (occurrence: None)
  Receive Date: 20050105
  Receipt Date: 20041221
  Transmission Date: 20050727
  Serious: Yes (Death, Hospitalization)
  Sender: FDA-Public Use
  Company Number: 2004AL000892

PATIENT
  Age: 45 Year
  Sex: Female

DRUGS (7)
  1. CHILDREN'S APAP ELIXIR (ACETAMINOPHEN) (ALPHARMA) [Suspect]
     Dosage: PO
     Route: 048
  2. INFANTS' APAP DROPS (ACETAMINOPHEN) (ALPHARMA) [Suspect]
     Dosage: PO
     Route: 048
  3. OLANZAPINE [Suspect]
     Dosage: PO
     Route: 048
  4. TRAZODONE [Concomitant]
  5. TRAZODONE [Concomitant]
  6. TOPIRAMATE [Concomitant]
  7. VALPROIC ACID [Concomitant]

REACTIONS (14)
  - ALANINE AMINOTRANSFERASE INCREASED [None]
  - ASPARTATE AMINOTRANSFERASE INCREASED [None]
  - BILIRUBIN CONJUGATED INCREASED [None]
  - BLOOD BILIRUBIN INCREASED [None]
  - BRAIN HERNIATION [None]
  - COMA [None]
  - COMPLETED SUICIDE [None]
  - DIALYSIS [None]
  - DRUG INEFFECTIVE [None]
  - ELECTROCARDIOGRAM QT CORRECTED INTERVAL PROLONGED [None]
  - HAEMORRHAGE INTRACRANIAL [None]
  - INTERNATIONAL NORMALISED RATIO INCREASED [None]
  - MULTIPLE DRUG OVERDOSE [None]
  - VOMITING [None]
